FAERS Safety Report 7362549-1 (Version None)
Quarter: 2011Q1

REPORT INFORMATION
  Report Type: 
  Country: None (occurrence: None)
  Receive Date: 20110318
  Receipt Date: 20110315
  Transmission Date: 20110831
  Serious: Yes (Hospitalization, Other)
  Sender: FDA-Public Use
  Company Number: US-AMGEN-USASP2010002298

PATIENT
  Age: 71 Year
  Sex: Male

DRUGS (6)
  1. NPLATE [Suspect]
     Dates: start: 20101026
  2. DIABETES MEDICATION [Concomitant]
  3. ATENOLOL [Concomitant]
     Indication: PRODUCT USED FOR UNKNOWN INDICATION
  4. NPLATE [Suspect]
     Indication: IDIOPATHIC THROMBOCYTOPENIC PURPURA
     Dosage: 250 A?G, UNK
     Dates: start: 20101026, end: 20101026
  5. TEMAZEPAM [Concomitant]
     Indication: PRODUCT USED FOR UNKNOWN INDICATION
  6. PRILOSEC [Concomitant]
     Indication: PRODUCT USED FOR UNKNOWN INDICATION

REACTIONS (18)
  - PULMONARY THROMBOSIS [None]
  - RED BLOOD CELL SEDIMENTATION RATE INCREASED [None]
  - ARTHRALGIA [None]
  - PAIN [None]
  - THROMBOSIS [None]
  - INFLUENZA [None]
  - ASTHENIA [None]
  - THROMBOCYTOSIS [None]
  - MYOCARDIAL INFARCTION [None]
  - THROMBOSIS IN DEVICE [None]
  - PYREXIA [None]
  - DEEP VEIN THROMBOSIS [None]
  - STICKY PLATELET SYNDROME [None]
  - VIRAL INFECTION [None]
  - DERMATITIS ALLERGIC [None]
  - WALKING AID USER [None]
  - TREMOR [None]
  - THROMBOCYTOPENIA [None]
